FAERS Safety Report 7945726-8 (Version None)
Quarter: 2011Q4

REPORT INFORMATION
  Report Type: 
  Country: None (occurrence: None)
  Receive Date: 20111129
  Receipt Date: 20111116
  Transmission Date: 20120403
  Serious: Yes (Death, Hospitalization)
  Sender: FDA-Public Use
  Company Number: CA-ELI_LILLY_AND_COMPANY-CA201111002328

PATIENT
  Sex: Male

DRUGS (10)
  1. CLOZARIL [Concomitant]
  2. EMPRACET                           /00020001/ [Concomitant]
  3. BUSPAR [Concomitant]
  4. ZYPREXA [Suspect]
     Indication: SCHIZOPHRENIA, PARANOID TYPE
     Dosage: 10 MG, EACH EVENING
     Dates: end: 19980526
  5. PAXIL [Concomitant]
  6. LECTOPAM TAB [Concomitant]
  7. FLUANXOL [Concomitant]
  8. HALDOL [Concomitant]
  9. KEMADRIN [Concomitant]
  10. ATIVAN [Concomitant]

REACTIONS (4)
  - HAEMORRHAGE [None]
  - IRON DEFICIENCY ANAEMIA [None]
  - COMPLETED SUICIDE [None]
  - CARBON MONOXIDE POISONING [None]
